FAERS Safety Report 9901920 (Version 1)
Quarter: 2014Q1

REPORT INFORMATION
  Report Type: Spontaneous
  Country: RU (occurrence: RU)
  Receive Date: 20140217
  Receipt Date: 20140217
  Transmission Date: 20141002
  Serious: Yes (Hospitalization)
  Sender: FDA-Public Use
  Company Number: RU-VIIV HEALTHCARE LIMITED-B0969719A

PATIENT
  Sex: Male
  Weight: 76 kg

DRUGS (7)
  1. COMBIVIR [Suspect]
     Indication: HIV INFECTION
     Dates: start: 201309
  2. KALETRA [Suspect]
     Indication: HIV INFECTION
     Dates: start: 201309
  3. RIFAMPICIN [Concomitant]
  4. CEFAZOLIN [Concomitant]
  5. VITAMINS [Concomitant]
  6. LINEX [Concomitant]
  7. FLUCONAZOLE [Concomitant]

REACTIONS (5)
  - Oesophageal candidiasis [Not Recovered/Not Resolved]
  - Pneumonia [Unknown]
  - Lymph node abscess [Unknown]
  - Weight decreased [Not Recovered/Not Resolved]
  - Cough [Unknown]
